FAERS Safety Report 5727525-0 (Version None)
Quarter: 2008Q2

REPORT INFORMATION
  Report Type: 
  Country: None (occurrence: None)
  Receive Date: 20080429
  Receipt Date: 20071012
  Transmission Date: 20081010
  Serious: Yes (Other)
  Sender: FDA-Public Use
  Company Number: 2007-165777-NL

PATIENT
  Age: 40 Year
  Sex: Female
  Weight: 59.1 kg

DRUGS (5)
  1. PUREGON [Suspect]
     Indication: ASSISTED FERTILISATION
     Dosage: 525 MG DAILY SUBCUTANEOUS
     Route: 058
     Dates: start: 20070924, end: 20070925
  2. PUREGON [Suspect]
     Indication: ASSISTED FERTILISATION
     Dosage: 375 MG DAILY SUBCUTANEOUS
     Route: 058
     Dates: start: 20070926, end: 20070926
  3. PUREGON [Suspect]
     Indication: ASSISTED FERTILISATION
     Dosage: 300 MG DAILY SUBCUTANEOUS
     Route: 058
     Dates: start: 20070927, end: 20070930
  4. MENOPUR [Concomitant]
  5. LUPRON [Concomitant]

REACTIONS (1)
  - OVARIAN HYPERSTIMULATION SYNDROME [None]
